FAERS Safety Report 5621610-X (Version None)
Quarter: 2008Q1

REPORT INFORMATION
  Report Type: 
  Country: None (occurrence: None)
  Receive Date: 20080211
  Receipt Date: 20080201
  Transmission Date: 20080703
  Serious: No
  Sender: FDA-Public Use
  Company Number: PHNU2008DE00786

PATIENT
  Sex: Female

DRUGS (11)
  1. ACLASTA [Suspect]
     Indication: OSTEOPOROSIS
     Dosage: 5 MG, ONCE YEARLY
     Route: 042
     Dates: start: 20071230
  2. FUROSEMIDE [Concomitant]
  3. INSULIN [Concomitant]
     Indication: DIABETES MELLITUS
  4. LORZAAR [Concomitant]
  5. MARCUMAR [Concomitant]
  6. CARVEDIOL [Concomitant]
  7. BONDIOL [Concomitant]
  8. CALCIUM ACETATE [Concomitant]
  9. L-THYROXINE [Concomitant]
  10. SODIUM BICARBONATE [Concomitant]
  11. NEXIUM [Concomitant]

REACTIONS (8)
  - ANOREXIA [None]
  - BLOOD CALCIUM DECREASED [None]
  - DIARRHOEA [None]
  - FATIGUE [None]
  - HYPERPARATHYROIDISM SECONDARY [None]
  - INFLUENZA LIKE ILLNESS [None]
  - NAUSEA [None]
  - WEIGHT DECREASED [None]
